FAERS Safety Report 7606303-1 (Version None)
Quarter: 2011Q3

REPORT INFORMATION
  Report Type: 
  Country: None (occurrence: None)
  Receive Date: 20110713
  Receipt Date: 20110630
  Transmission Date: 20111222
  Serious: Yes (Other)
  Sender: FDA-Public Use
  Company Number: US-BAYER-201042145NA

PATIENT
  Age: 47 Year
  Sex: Female
  Weight: 69.388 kg

DRUGS (9)
  1. YAZ [Suspect]
     Indication: ORAL CONTRACEPTION
     Dosage: UNK
     Route: 048
     Dates: start: 20080328, end: 20080830
  2. YAZ [Suspect]
     Indication: MENORRHAGIA
  3. LASIX [Concomitant]
     Dosage: UNK
     Dates: start: 20080124
  4. YAZ [Suspect]
     Indication: MENOPAUSAL SYMPTOMS
  5. LYRICA [Concomitant]
  6. XANAX [Concomitant]
     Indication: ANXIETY
     Dosage: 0.25 MG, UNK
     Dates: start: 20070101
  7. AMOXICILLIN AND CLAVULANATE POTASSIUM [Concomitant]
  8. IMITREX [Concomitant]
     Indication: MIGRAINE
     Dosage: 100 MG, UNK
  9. XANAX [Concomitant]
     Indication: INSOMNIA

REACTIONS (1)
  - DEEP VEIN THROMBOSIS [None]
